FAERS Safety Report 5024146-2 (Version None)
Quarter: 2006Q2

REPORT INFORMATION
  Report Type: 
  Country: None (occurrence: None)
  Receive Date: 20060607
  Receipt Date: 20060524
  Transmission Date: 20061013
  Serious: Yes (Death, Disabling, Other)
  Sender: FDA-Public Use
  Company Number: 2005139818

PATIENT
  Sex: Female

DRUGS (1)
  1. BEXTRA [Suspect]
     Indication: ARTHRITIS
     Dosage: 10 MG (10 MG, 1 IN 1 D),
     Dates: start: 20040830

REACTIONS (4)
  - ANGIOPATHY [None]
  - CARDIAC FAILURE CONGESTIVE [None]
  - INJURY [None]
  - PERFORMANCE STATUS DECREASED [None]
